FAERS Safety Report 13189937 (Version 4)
Quarter: 2017Q3

REPORT INFORMATION
  Report Type: Spontaneous
  Country: US (occurrence: US)
  Receive Date: 20170206
  Receipt Date: 20170825
  Transmission Date: 20171127
  Serious: No
  Sender: FDA-Public Use
  Company Number: US-PFIZER INC-2017047286

PATIENT
  Age: 63 Year
  Sex: Male
  Weight: 111 kg

DRUGS (6)
  1. GENOTROPIN [Suspect]
     Active Substance: SOMATROPIN
     Indication: PITUITARY TUMOUR
     Dosage: 0.2 MG, DAILY
     Route: 058
     Dates: start: 201608
  2. GENOTROPIN [Suspect]
     Active Substance: SOMATROPIN
     Dosage: UNK, 1X/DAY (4, ONCE IN THE EVENING EVERY DAY)
     Dates: start: 2016
  3. LEVOTHYROXINE. [Concomitant]
     Active Substance: LEVOTHYROXINE
     Indication: HYPOTHYROIDISM
     Dosage: UNK
  4. GENOTROPIN [Suspect]
     Active Substance: SOMATROPIN
     Dosage: 0.2 MG, DAILY
     Route: 058
     Dates: start: 201701
  5. GENOTROPIN [Suspect]
     Active Substance: SOMATROPIN
     Indication: GROWTH HORMONE DEFICIENCY
     Dosage: 0.2 MG, UNK
     Dates: start: 2016
  6. CORTISONE [Concomitant]
     Active Substance: CORTISONE\HYDROCORTISONE
     Indication: HYPOPHYSECTOMY
     Dosage: UNK

REACTIONS (6)
  - Drug dose omission [Not Recovered/Not Resolved]
  - Device issue [Unknown]
  - Incorrect dose administered by device [Recovered/Resolved]
  - Accidental overdose [Recovering/Resolving]
  - Weight decreased [Unknown]
  - Device issue [Recovered/Resolved]

NARRATIVE: CASE EVENT DATE: 201701
